FAERS Safety Report 20348324 (Version 2)
Quarter: 2022Q1

REPORT INFORMATION
  Report Type: Spontaneous
  Country: US (occurrence: US)
  Receive Date: 20220119
  Receipt Date: 20220208
  Transmission Date: 20220423
  Serious: No
  Sender: FDA-Public Use
  Company Number: ALC2022US000531

PATIENT
  Sex: Female

DRUGS (3)
  1. SYSTANE NIGHTTIME [Suspect]
     Active Substance: MINERAL OIL\PETROLATUM
     Indication: Dry eye
     Dosage: UNK
     Route: 047
  2. SYSTANE NIGHTTIME [Suspect]
     Active Substance: MINERAL OIL\PETROLATUM
     Route: 047
  3. SYSTANE NIGHTTIME [Suspect]
     Active Substance: MINERAL OIL\PETROLATUM
     Route: 047

REACTIONS (5)
  - Visual impairment [Unknown]
  - Product physical consistency issue [Unknown]
  - Product packaging issue [Unknown]
  - Vision blurred [Unknown]
  - Chalazion [Unknown]
